FAERS Safety Report 4993942-X (Version None)
Quarter: 2006Q2

REPORT INFORMATION
  Report Type: 
  Country: None (occurrence: None)
  Receive Date: 20060505
  Receipt Date: 20060501
  Transmission Date: 20061013
  Serious: Yes (Hospitalization, Disabling, Other)
  Sender: FDA-Public Use
  Company Number: US-GLAXOSMITHKLINE-A0603871A

PATIENT
  Age: 52 Year
  Sex: Female

DRUGS (3)
  1. AMERGE [Suspect]
     Indication: MIGRAINE
     Dosage: 2.5MG AS REQUIRED
     Route: 048
     Dates: start: 20020101
  2. MIDRIN [Concomitant]
  3. HEADACHE MEDICATION [Concomitant]

REACTIONS (3)
  - ANXIETY [None]
  - MYOCARDIAL INFARCTION [None]
  - STRESS [None]
